FAERS Safety Report 4411227-7 (Version None)
Quarter: 2004Q3

REPORT INFORMATION
  Report Type: 
  Country: None (occurrence: None)
  Receive Date: 20040727
  Receipt Date: 20040715
  Transmission Date: 20050211
  Serious: Yes (Disabling, Other)
  Sender: FDA-Public Use
  Company Number: FR-JNJFOC-20040403203

PATIENT
  Age: 39 Year
  Sex: Female
  Weight: 59 kg

DRUGS (2)
  1. CAELYX (DOXORUBICIN HYDROCHLORIDE) LIPOSOME INJECTION [Suspect]
     Indication: BREAST CANCER METASTATIC
     Dosage: 80 MG INTRAVENOUS
     Route: 042
     Dates: start: 20040203, end: 20040302
  2. ZOMETA (INJECTION) ZOLEDRONIC ACID [Concomitant]

REACTIONS (7)
  - EPIDERMAL NECROSIS [None]
  - EPIDERMODYSPLASIA VERRUCIFORMIS [None]
  - IMMUNODEFICIENCY [None]
  - INTERTRIGO [None]
  - KERATOSIS FOLLICULAR [None]
  - PALMAR-PLANTAR ERYTHRODYSAESTHESIA SYNDROME [None]
  - TOXIC SKIN ERUPTION [None]
